FAERS Safety Report 5654765-1 (Version None)
Quarter: 2008Q1

REPORT INFORMATION
  Report Type: 
  Country: None (occurrence: None)
  Receive Date: 20080307
  Receipt Date: 20080207
  Transmission Date: 20080703
  Serious: No
  Sender: FDA-Public Use
  Company Number: SV-AVENTIS-200811823GDDC

PATIENT
  Age: 37 Year
  Sex: Female

DRUGS (6)
  1. ARAVA [Suspect]
     Indication: RHEUMATOID ARTHRITIS
     Route: 048
     Dates: start: 20040823, end: 20070101
  2. METHOTREXATE [Suspect]
     Indication: RHEUMATOID ARTHRITIS
     Route: 048
     Dates: start: 20040101, end: 20070101
  3. CHLOROQUINE PHOSPHATE [Suspect]
     Route: 048
     Dates: start: 20040101, end: 20070101
  4. PREDNISONE TAB [Suspect]
     Route: 048
     Dates: end: 20071001
  5. SODIUM DICLOFENAC [Suspect]
     Route: 048
     Dates: start: 20040101, end: 20071001
  6. ACETAMINOPHEN [Suspect]
     Route: 048
     Dates: start: 20071001

REACTIONS (1)
  - DRUG EXPOSURE DURING PREGNANCY [None]
